FAERS Safety Report 4876062-4 (Version None)
Quarter: 2005Q4

REPORT INFORMATION
  Report Type: 
  Country: None (occurrence: None)
  Receive Date: 20051206
  Receipt Date: 20051025
  Transmission Date: 20060501
  Serious: No
  Sender: FDA-Public Use
  Company Number: USA0510111716

PATIENT
  Sex: Male

DRUGS (2)
  1. CYMBALTA [Suspect]
     Indication: BIPOLAR DISORDER
     Dosage: 30 MG/ 2 DAY
     Dates: start: 20050101
  2. RISPERDAL [Concomitant]

REACTIONS (1)
  - DIABETES MELLITUS [None]
